FAERS Safety Report 14900516 (Version 1)
Quarter: 2018Q2

REPORT INFORMATION
  Report Type: Spontaneous
  Country: US (occurrence: US)
  Receive Date: 20180429
  Receipt Date: 20180429
  Transmission Date: 20180711
  Serious: Yes (Other)
  Sender: FDA-Public Use
  Company Number: None

PATIENT
  Age: 39 Year
  Sex: Female
  Weight: 126 kg

DRUGS (3)
  1. COREG [Concomitant]
     Active Substance: CARVEDILOL
  2. LOSARTAN 50 MG [Suspect]
     Active Substance: LOSARTAN
     Indication: CARDIAC FAILURE
     Dosage: ?          QUANTITY:1 TABLET(S);?
     Route: 048
     Dates: start: 20180309, end: 20180429
  3. LASIX [Concomitant]
     Active Substance: FUROSEMIDE

REACTIONS (1)
  - Alopecia [None]

NARRATIVE: CASE EVENT DATE: 20180401
